FAERS Safety Report 7585738-X (Version None)
Quarter: 2011Q2

REPORT INFORMATION
  Report Type: 
  Country: None (occurrence: None)
  Receive Date: 20110629
  Receipt Date: 20110629
  Transmission Date: 20111010
  Serious: Yes (Other)
  Sender: FDA-Public Use
  Company Number: None

PATIENT
  Age: 18 Year
  Sex: Male
  Weight: 63.6 kg

DRUGS (2)
  1. CLOZAPINE [Suspect]
     Indication: PSYCHOTIC DISORDER
     Dosage: 300MG QHS PO
     Route: 048
     Dates: start: 20110414, end: 20110423
  2. CLOZAPINE [Suspect]
     Indication: SCHIZOAFFECTIVE DISORDER
     Dosage: 300MG QHS PO
     Route: 048
     Dates: start: 20110414, end: 20110423

REACTIONS (6)
  - BRAIN NATRIURETIC PEPTIDE INCREASED [None]
  - ELECTROCARDIOGRAM ABNORMAL [None]
  - HEART RATE INCREASED [None]
  - MALAISE [None]
  - PYREXIA [None]
  - TROPONIN INCREASED [None]
